FAERS Safety Report 9282770 (Version 1)
Quarter: 2013Q2

REPORT INFORMATION
  Report Type: Spontaneous
  Country: US (occurrence: US)
  Receive Date: 20130510
  Receipt Date: 20130510
  Transmission Date: 20140414
  Serious: Yes (Other)
  Sender: FDA-Public Use
  Company Number: US-BRISTOL-MYERS SQUIBB COMPANY-18854240

PATIENT
  Age: 60 Year
  Sex: Male
  Weight: 92.97 kg

DRUGS (2)
  1. ABATACEPT SUBQ INJECTION 125MG/ML [Suspect]
     Indication: RHEUMATOID ARTHRITIS
     Dosage: 1DF:125MG?LAST INJECTION:23APR2013
     Route: 058
  2. VALTREX [Concomitant]

REACTIONS (2)
  - Umbilical hernia [Unknown]
  - Herpes virus infection [Unknown]
